FAERS Safety Report 9414978 (Version 1)
Quarter: 2013Q3

REPORT INFORMATION
  Report Type: Spontaneous
  Country: US (occurrence: US)
  Receive Date: 20130723
  Receipt Date: 20130723
  Transmission Date: 20140515
  Serious: Yes (Other)
  Sender: FDA-Public Use
  Company Number: US-JNJFOC-20130707650

PATIENT
  Sex: Male

DRUGS (9)
  1. STELARA [Suspect]
     Indication: PRODUCT USED FOR UNKNOWN INDICATION
     Route: 058
     Dates: start: 20100106, end: 20130327
  2. LEVOTHYROXINE [Concomitant]
     Route: 065
  3. PRAVASTATIN [Concomitant]
     Route: 065
  4. ONGLYZA [Concomitant]
     Route: 065
  5. LANTUS [Concomitant]
     Route: 065
  6. RAPTIVA [Concomitant]
     Route: 065
     Dates: start: 20060806, end: 200611
  7. METHOTREXATE [Concomitant]
     Route: 048
     Dates: start: 20060222, end: 200711
  8. ENBREL [Concomitant]
     Route: 065
     Dates: start: 20070607, end: 200910
  9. METHOTREXATE [Concomitant]
     Route: 065
     Dates: start: 20060222, end: 200711

REACTIONS (1)
  - Bladder transitional cell carcinoma [Unknown]
